FAERS Safety Report 22911756 (Version 9)
Quarter: 2025Q2

REPORT INFORMATION
  Report Type: Report from Study
  Country: US (occurrence: US)
  Receive Date: 20230906
  Receipt Date: 20250528
  Transmission Date: 20250716
  Serious: Yes (Hospitalization, Other)
  Sender: TAKEDA
  Company Number: US-TAKEDA-2023TUS075002

PATIENT
  Age: 82 Year
  Sex: Female

DRUGS (9)
  1. TEDUGLUTIDE [Suspect]
     Active Substance: TEDUGLUTIDE
     Indication: Short-bowel syndrome
     Dosage: 2.4 MILLIGRAM, QD
     Dates: start: 20230710
  2. TEDUGLUTIDE [Suspect]
     Active Substance: TEDUGLUTIDE
     Dosage: 2.9 MILLIGRAM, QD
     Dates: start: 20230711
  3. TEDUGLUTIDE [Suspect]
     Active Substance: TEDUGLUTIDE
     Dosage: 2.9 MILLIGRAM, QD
  4. TEDUGLUTIDE [Suspect]
     Active Substance: TEDUGLUTIDE
     Dosage: 2.9 MILLIGRAM, QD
     Dates: start: 20230911
  5. TEDUGLUTIDE [Suspect]
     Active Substance: TEDUGLUTIDE
     Dosage: 2.9 MILLIGRAM, QD
  6. TEDUGLUTIDE [Suspect]
     Active Substance: TEDUGLUTIDE
     Dosage: 2.9 MILLIGRAM, QD
  7. TEDUGLUTIDE [Suspect]
     Active Substance: TEDUGLUTIDE
     Dosage: 2.9 MILLIGRAM, QD
  8. TEDUGLUTIDE [Suspect]
     Active Substance: TEDUGLUTIDE
     Dosage: 2.9 MILLIGRAM, QD
  9. TEDUGLUTIDE [Suspect]
     Active Substance: TEDUGLUTIDE
     Dosage: 2.4 MILLIGRAM, QD

REACTIONS (13)
  - Constipation [Recovering/Resolving]
  - Diarrhoea [Recovered/Resolved]
  - Fall [Unknown]
  - Femur fracture [Unknown]
  - Vomiting [Not Recovered/Not Resolved]
  - Intestinal obstruction [Recovering/Resolving]
  - Device related sepsis [Recovering/Resolving]
  - Product leakage [Unknown]
  - Product container issue [Unknown]
  - Needle issue [Unknown]
  - Injection site mass [Unknown]
  - Product reconstitution quality issue [Recovered/Resolved]
  - Decreased appetite [Not Recovered/Not Resolved]

NARRATIVE: CASE EVENT DATE: 20230728
